FAERS Safety Report 5691581-9 (Version None)
Quarter: 2008Q2

REPORT INFORMATION
  Report Type: 
  Country: None (occurrence: None)
  Receive Date: 20080402
  Receipt Date: 20080325
  Transmission Date: 20081010
  Serious: Yes (Other)
  Sender: FDA-Public Use
  Company Number: ES-JNJFOC-20080306339

PATIENT

DRUGS (1)
  1. REMICADE [Suspect]
     Indication: PSORIASIS
     Route: 059

REACTIONS (1)
  - ARTHRITIS [None]
